FAERS Safety Report 7942643-4 (Version None)
Quarter: 2011Q4

REPORT INFORMATION
  Report Type: 
  Country: None (occurrence: None)
  Receive Date: 20111122
  Receipt Date: 20110815
  Transmission Date: 20120403
  Serious: Yes (Other)
  Sender: FDA-Public Use
  Company Number: PHHY2011US55237

PATIENT
  Age: 42 Year
  Sex: Female
  Weight: 64 kg

DRUGS (4)
  1. NAPROXEN (ALEVE) [Concomitant]
  2. BACLOFEN [Concomitant]
  3. GILENYA [Suspect]
     Indication: MULTIPLE SCLEROSIS
     Dosage: 0.5 MG, QD, ORAL
     Route: 048
     Dates: start: 20110517, end: 20110613
  4. FAMPRIDINE (FAMPRIDINE) [Concomitant]

REACTIONS (4)
  - TRANSAMINASES INCREASED [None]
  - BLOOD ALBUMIN DECREASED [None]
  - NAUSEA [None]
  - BLOOD BILIRUBIN INCREASED [None]
